FAERS Safety Report 9216493 (Version 1)
Quarter: 2013Q1

REPORT INFORMATION
  Report Type: Spontaneous
  Country: US (occurrence: None)
  Receive Date: 20130131
  Receipt Date: 20130131
  Transmission Date: 20140127
  Serious: No
  Sender: FDA-Public Use
  Company Number: CIO13001406

PATIENT
  Age: 10 Month
  Sex: Female

DRUGS (1)
  1. VAPO STEAM (CAMPHOR 6.2%) LIQUID, 1DF [Suspect]
     Dosage: 1 TASTE, 1 ONLY, ORAL
     Route: 048
     Dates: start: 20130114, end: 20130114

REACTIONS (4)
  - Accidental exposure to product by child [None]
  - Respiratory arrest [None]
  - Dyspnoea [None]
  - Incorrect route of drug administration [None]
